FAERS Safety Report 6280802-X (Version None)
Quarter: 2009Q3

REPORT INFORMATION
  Report Type: 
  Country: None (occurrence: None)
  Receive Date: 20090724
  Receipt Date: 20090223
  Transmission Date: 20100115
  Serious: No
  Sender: FDA-Public Use
  Company Number: A0767471A

PATIENT
  Age: 60 Year
  Sex: Male

DRUGS (12)
  1. AVANDIA [Suspect]
     Dosage: 8MG PER DAY
     Route: 048
     Dates: start: 20000101
  2. INSULIN [Concomitant]
  3. LISINOPRIL [Concomitant]
  4. AMLODIPINE [Concomitant]
  5. AMLODIPINE BESYLATE [Concomitant]
  6. FISH OIL [Concomitant]
  7. NORTRIPTYLINE HCL [Concomitant]
  8. LEVOTHYROXINE SODIUM [Concomitant]
  9. ATENOLOL [Concomitant]
  10. SIMVASTATIN [Concomitant]
  11. HYDROCHLOROTHIAZIDE [Concomitant]
  12. VICODIN [Concomitant]

REACTIONS (3)
  - FATIGUE [None]
  - OEDEMA PERIPHERAL [None]
  - WEIGHT INCREASED [None]
